FAERS Safety Report 15271755 (Version 2)
Quarter: 2018Q3

REPORT INFORMATION
  Report Type: Spontaneous
  Country: DE (occurrence: DE)
  Receive Date: 20180813
  Receipt Date: 20180829
  Transmission Date: 20181010
  Serious: Yes (Life-Threatening, Hospitalization)
  Sender: FDA-Public Use
  Company Number: PHHY2018DE068601

PATIENT
  Age: 77 Year
  Sex: Female

DRUGS (25)
  1. CARBOPLATIN. [Suspect]
     Active Substance: CARBOPLATIN
     Dosage: 465 MG, QW3
     Route: 042
     Dates: start: 20130904, end: 20130904
  2. BAYOTENSIN [Concomitant]
     Active Substance: NITRENDIPINE
     Indication: HYPERTENSION
     Dosage: 5 MG, UNK
     Route: 048
  3. CARBOPLATIN. [Suspect]
     Active Substance: CARBOPLATIN
     Dosage: 465 MG, QW3
     Route: 042
     Dates: start: 20131116
  4. AVASTIN [Suspect]
     Active Substance: BEVACIZUMAB
     Indication: OVARIAN CANCER
     Dosage: 1050 MG, QW3
     Route: 042
     Dates: start: 20140918, end: 20140918
  5. AVASTIN [Suspect]
     Active Substance: BEVACIZUMAB
     Dosage: 1000 MG, QW3
     Route: 042
     Dates: start: 20131218
  6. PACLITAXEL. [Suspect]
     Active Substance: PACLITAXEL
     Dosage: 304?308 MG, Q3W
     Route: 042
     Dates: start: 20130904
  7. CARBOPLATIN. [Suspect]
     Active Substance: CARBOPLATIN
     Dosage: 390 MG, QW3
     Route: 042
     Dates: start: 20131127, end: 20131127
  8. AVASTIN [Suspect]
     Active Substance: BEVACIZUMAB
     Dosage: 1000 MG, UNK
     Route: 042
  9. DIAZEPAM. [Concomitant]
     Active Substance: DIAZEPAM
     Indication: DEPRESSION
     Dosage: 10 MG, QD
     Route: 048
  10. PACLITAXEL. [Suspect]
     Active Substance: PACLITAXEL
     Indication: OVARIAN CANCER
     Dosage: 304?308 MG, Q3W
     Route: 042
     Dates: start: 20130814, end: 20131127
  11. FERRO SANOL [Concomitant]
     Active Substance: FERROUS GLYCINE SULFATE
     Indication: PRODUCT USED FOR UNKNOWN INDICATION
     Route: 065
  12. ANAFRANIL [Concomitant]
     Active Substance: CLOMIPRAMINE HYDROCHLORIDE
     Indication: DEPRESSION
     Dosage: 50 MG, QD
     Route: 048
  13. VALSARTAN. [Concomitant]
     Active Substance: VALSARTAN
     Indication: HYPERTENSION
     Dosage: 320 MG, QD
     Route: 048
     Dates: start: 20140926
  14. CARBOPLATIN. [Suspect]
     Active Substance: CARBOPLATIN
     Indication: OVARIAN CANCER
     Dosage: 420 MG, QW3
     Route: 042
     Dates: start: 20130814, end: 20130814
  15. FELODIPIN [Concomitant]
     Active Substance: FELODIPINE
     Indication: HYPERTENSION
     Dosage: 10 MG, UNK
     Route: 048
  16. PACLITAXEL. [Suspect]
     Active Substance: PACLITAXEL
     Dosage: 306 MG, UNK
     Route: 042
     Dates: start: 20131016
  17. AVASTIN [Suspect]
     Active Substance: BEVACIZUMAB
     Dosage: 1020 MG, QW3
     Route: 042
     Dates: start: 20131016
  18. AVASTIN [Suspect]
     Active Substance: BEVACIZUMAB
     Dosage: 998 MG, QW3
     Route: 042
     Dates: start: 20140129
  19. RAMIPRIL. [Concomitant]
     Active Substance: RAMIPRIL
     Indication: HYPERTENSION
     Dosage: 5 MG, UNK
     Route: 048
  20. PACLITAXEL. [Suspect]
     Active Substance: PACLITAXEL
     Dosage: 308 MG, UNK
     Route: 042
     Dates: start: 20131127
  21. AVASTIN [Suspect]
     Active Substance: BEVACIZUMAB
     Dosage: 1060 MG, UNK
     Route: 042
  22. AVASTIN [Suspect]
     Active Substance: BEVACIZUMAB
     Dosage: 1040 MG, QW3
     Route: 042
     Dates: start: 20131106
  23. BAYOTENSIN [Concomitant]
     Active Substance: NITRENDIPINE
     Dosage: 10 MG, QD
     Route: 048
     Dates: start: 20140423, end: 20140423
  24. CLONIDINE. [Concomitant]
     Active Substance: CLONIDINE
     Indication: HYPERTENSION
     Dosage: 0.5 DF, ONCE
     Route: 058
  25. SPASMEX [Concomitant]
     Indication: INCONTINENCE
     Route: 048

REACTIONS (18)
  - Hemiparesis [Recovering/Resolving]
  - Memory impairment [Not Recovered/Not Resolved]
  - Paraesthesia [Not Recovered/Not Resolved]
  - Dysgeusia [Recovered/Resolved]
  - Cerebral infarction [Recovered/Resolved with Sequelae]
  - Pain in extremity [Recovered/Resolved]
  - Anaemia [Recovered/Resolved]
  - Nausea [Not Recovered/Not Resolved]
  - Bone pain [Recovered/Resolved]
  - Aspiration [Recovered/Resolved]
  - Pneumonia aspiration [Recovered/Resolved]
  - Hypercholesterolaemia [Not Recovered/Not Resolved]
  - Asphyxia [Recovered/Resolved]
  - Aphasia [Recovering/Resolving]
  - Hypoxia [Recovered/Resolved]
  - Dizziness [Not Recovered/Not Resolved]
  - Cardiovascular disorder [Not Recovered/Not Resolved]
  - Haemoglobin decreased [Not Recovered/Not Resolved]

NARRATIVE: CASE EVENT DATE: 20130904
